FAERS Safety Report 17104917 (Version 1)
Quarter: 2019Q4

REPORT INFORMATION
  Report Type: Spontaneous
  Country: BR (occurrence: BR)
  Receive Date: 20191203
  Receipt Date: 20191203
  Transmission Date: 20200122
  Serious: Yes (Other)
  Sender: FDA-Public Use
  Company Number: NVSC2019BR034979

PATIENT
  Sex: Male
  Weight: 78 kg

DRUGS (4)
  1. ROXFLAN [Concomitant]
     Active Substance: AMLODIPINE BESYLATE
     Indication: HYPERTENSION
     Dosage: 1 DF, QD
     Route: 048
  2. HYDROCHLOROTHIAZIDE. [Concomitant]
     Active Substance: HYDROCHLOROTHIAZIDE
     Indication: HYPERTENSION
     Dosage: 1 DF, QD
     Route: 048
  3. DIOVAN [Suspect]
     Active Substance: VALSARTAN
     Indication: HYPERTENSION
     Dosage: 1 DF, BID
     Route: 048
  4. ALENDRONATE SODIUM TRIHYDRATE [Suspect]
     Active Substance: ALENDRONATE SODIUM
     Indication: OSTEOPOROSIS
     Dosage: 1 DF, QD (ONCE A DAY, EVERY 8 DAYS)
     Route: 048

REACTIONS (7)
  - Prostatitis [Not Recovered/Not Resolved]
  - Feeling hot [Recovering/Resolving]
  - Helicobacter infection [Recovering/Resolving]
  - Oropharyngeal discomfort [Recovering/Resolving]
  - Diverticulitis [Recovering/Resolving]
  - Burning sensation [Recovering/Resolving]
  - Abdominal discomfort [Unknown]
